FAERS Safety Report 22587457 (Version 1)
Quarter: 2023Q2

REPORT INFORMATION
  Report Type: Spontaneous
  Country: CN (occurrence: CN)
  Receive Date: 20230612
  Receipt Date: 20230612
  Transmission Date: 20230722
  Serious: Yes (Other)
  Sender: FDA-Public Use
  Company Number: CN-DENTSPLY-2023SCDP000181

PATIENT
  Age: 4 Year
  Sex: Female

DRUGS (1)
  1. LIDOCAINE [Suspect]
     Active Substance: LIDOCAINE
     Indication: Analgesic therapy
     Dosage: UNK DOSE OF COMPOUND LIDOCAINE CREAM
     Route: 061
     Dates: start: 202001

REACTIONS (4)
  - Urinary incontinence [Recovered/Resolved]
  - Cyanosis [Recovered/Resolved]
  - Seizure [Recovered/Resolved]
  - Loss of consciousness [Recovered/Resolved]

NARRATIVE: CASE EVENT DATE: 20200101
